FAERS Safety Report 5537342-2 (Version None)
Quarter: 2007Q4

REPORT INFORMATION
  Report Type: 
  Country: None (occurrence: None)
  Receive Date: 20071207
  Receipt Date: 20071130
  Transmission Date: 20080405
  Serious: Yes (Other)
  Sender: FDA-Public Use
  Company Number: B0496881A

PATIENT
  Age: 23 Year
  Sex: Female

DRUGS (1)
  1. NIQUITIN CQ CLEAR 14MG [Suspect]
     Route: 062
     Dates: start: 20071115, end: 20071115

REACTIONS (5)
  - DIZZINESS [None]
  - NAUSEA [None]
  - PALPITATIONS [None]
  - SYNCOPE [None]
  - VOMITING [None]
